FAERS Safety Report 15097162 (Version 4)
Quarter: 2019Q2

REPORT INFORMATION
  Report Type: Spontaneous
  Country: US (occurrence: US)
  Receive Date: 20180702
  Receipt Date: 20190425
  Transmission Date: 20190711
  Serious: No
  Sender: FDA-Public Use
  Company Number: US-SA-2018SA082562

PATIENT
  Age: 20 Year
  Sex: Male
  Weight: 69.8 kg

DRUGS (3)
  1. BENADRYL [Concomitant]
     Active Substance: DIPHENHYDRAMINE HYDROCHLORIDE
     Indication: PREMEDICATION
     Dosage: 50 MG,UNK
     Route: 065
  2. FABRAZYME [Suspect]
     Active Substance: AGALSIDASE BETA
     Indication: FABRY^S DISEASE
     Dosage: 70 MG,QOW
     Route: 041
     Dates: start: 20150129, end: 20180802
  3. TYLENOL [Concomitant]
     Active Substance: ACETAMINOPHEN
     Indication: PREMEDICATION
     Dosage: 650 MG,UNK
     Route: 065

REACTIONS (7)
  - Blood immunoglobulin G increased [Not Recovered/Not Resolved]
  - Unevaluable event [Unknown]
  - Pain in extremity [Recovered/Resolved]
  - Chest discomfort [Recovered/Resolved]
  - Urticaria [Recovered/Resolved]
  - Chest pain [Recovered/Resolved]
  - Neutralising antibodies negative [Not Recovered/Not Resolved]

NARRATIVE: CASE EVENT DATE: 20180314
